FAERS Safety Report 12316697 (Version 1)
Quarter: 2016Q2

REPORT INFORMATION
  Report Type: Spontaneous
  Country: AU (occurrence: AU)
  Receive Date: 20160429
  Receipt Date: 20160429
  Transmission Date: 20160815
  Serious: Yes (Other)
  Sender: FDA-Public Use
  Company Number: AU-JNJFOC-20160418405

PATIENT
  Age: 6 Decade
  Sex: Female

DRUGS (2)
  1. REGAINE REGULAR STRENGTH WOMEN 25 [Suspect]
     Active Substance: MINOXIDIL
     Indication: PRODUCT USED FOR UNKNOWN INDICATION
     Route: 061
     Dates: start: 20160401, end: 20160407
  2. REGAINE REGULAR STRENGTH WOMEN 25 [Suspect]
     Active Substance: MINOXIDIL
     Route: 061

REACTIONS (5)
  - Dry skin [Recovering/Resolving]
  - Eye pain [Recovering/Resolving]
  - Ocular hyperaemia [Recovering/Resolving]
  - Erythema [Recovering/Resolving]
  - Rash [Recovering/Resolving]

NARRATIVE: CASE EVENT DATE: 20160407
